FAERS Safety Report 7000005-0 (Version None)
Quarter: 2010Q3

REPORT INFORMATION
  Report Type: 
  Country: None (occurrence: None)
  Receive Date: 20100920
  Receipt Date: 20070619
  Transmission Date: 20110219
  Serious: Yes (Other)
  Sender: FDA-Public Use
  Company Number: US-ASTRAZENECA-2006UW22404

PATIENT
  Age: 20567 Day
  Sex: Female
  Weight: 90.7 kg

DRUGS (19)
  1. SEROQUEL [Suspect]
     Indication: DEPRESSION
     Dosage: STRENGTH 300 MG.  DOSE 200 MG.
     Route: 048
     Dates: start: 20030918
  2. SEROQUEL [Suspect]
     Route: 048
     Dates: start: 20050901, end: 20060201
  3. GEODON [Concomitant]
  4. CITALOPRAM HYDROBROMIDE [Concomitant]
     Dosage: 1 EVERY MORNING
  5. CITALOPRAM HYDROBROMIDE [Concomitant]
     Dates: start: 20060101
  6. NORVASC [Concomitant]
     Route: 048
     Dates: start: 20030101
  7. ZOLOFT [Concomitant]
     Dosage: STRENGTH 50 MG, 100 MG.  DOSE 100 MG DAILY.
     Route: 048
     Dates: start: 20040101
  8. DIOVAN HCT [Concomitant]
     Indication: OEDEMA
     Dosage: STRENGTH 80/ 12.5, 160/ 12.5
     Dates: start: 20030101
  9. DIOVAN HCT [Concomitant]
     Indication: BLOOD PRESSURE
     Dosage: STRENGTH 80/ 12.5, 160/ 12.5
     Dates: start: 20030101
  10. AVANDIA [Concomitant]
     Dosage: STRENGTH 4 MG, 8 MG.  DOSE DAILY
     Route: 048
     Dates: start: 20040101
  11. PEPCID [Concomitant]
     Route: 048
     Dates: start: 20040323
  12. IBUPROFEN [Concomitant]
     Dates: start: 20050515
  13. ALBUTEROL [Concomitant]
     Dates: start: 20050516
  14. ZITHROMAX [Concomitant]
     Dates: start: 20050516
  15. ENALAPR/HCTZ [Concomitant]
     Dosage: STRENGTH 10-25
     Dates: start: 20050707
  16. ACETAMINOPHEN AND HYDROCODONE BITARTRATE [Concomitant]
     Dosage: STRENGTH 5-500
     Dates: start: 20050516
  17. WELLBUTRIN XL [Concomitant]
     Dates: start: 20040202
  18. PAXIL CR [Concomitant]
     Dosage: STRENGTH 37.5 MG, 25 MG.  DOSE DAILY.
     Route: 048
     Dates: start: 20030101
  19. ALTACE [Concomitant]
     Route: 048
     Dates: start: 20040101

REACTIONS (5)
  - DIABETES MELLITUS [None]
  - HYPERGLYCAEMIA [None]
  - HYPOGLYCAEMIA [None]
  - TYPE 2 DIABETES MELLITUS [None]
  - VISION BLURRED [None]
